FAERS Safety Report 7426900-6 (Version None)
Quarter: 2011Q2

REPORT INFORMATION
  Report Type: 
  Country: None (occurrence: None)
  Receive Date: 20110420
  Receipt Date: 20110413
  Transmission Date: 20111010
  Serious: Yes (Other)
  Sender: FDA-Public Use
  Company Number: DE-TEVA-276439GER

PATIENT
  Sex: Male

DRUGS (2)
  1. EPIMEDAC [Suspect]
     Indication: GASTRIC CANCER
     Dosage: 100 MILLIGRAM;
     Route: 042
     Dates: start: 20110322
  2. OXALIPLATIN [Suspect]
     Indication: GASTRIC CANCER
     Dosage: 250 MILLIGRAM;
     Route: 042
     Dates: start: 20110322

REACTIONS (2)
  - YELLOW SKIN [None]
  - PAIN IN EXTREMITY [None]
